FAERS Safety Report 19012121 (Version 2)
Quarter: 2023Q2

REPORT INFORMATION
  Report Type: Spontaneous
  Country: FR (occurrence: FR)
  Receive Date: 20210315
  Receipt Date: 20230610
  Transmission Date: 20230722
  Serious: Yes (Death, Hospitalization, Other)
  Sender: FDA-Public Use
  Company Number: FR-AMGEN-FRASP2021038466

PATIENT

DRUGS (8)
  1. ROMIPLOSTIM [Suspect]
     Active Substance: ROMIPLOSTIM
     Indication: Immune thrombocytopenia
     Dosage: UNK
     Route: 065
  2. MYCOPHENOLATE MOFETIL [Concomitant]
     Active Substance: MYCOPHENOLATE MOFETIL
     Dosage: UNK
     Route: 065
  3. AZATHIOPRINE [Concomitant]
     Active Substance: AZATHIOPRINE
     Dosage: UNK
     Route: 065
  4. CYCLOPHOSPHAMIDE [Concomitant]
     Active Substance: CYCLOPHOSPHAMIDE
     Dosage: UNK
     Route: 065
  5. CYCLOSPORINE [Concomitant]
     Active Substance: CYCLOSPORINE
     Dosage: UNK
     Route: 065
  6. EVEROLIMUS [Concomitant]
     Active Substance: EVEROLIMUS
  7. PREDNISONE [Concomitant]
     Active Substance: PREDNISONE
     Dosage: UNK
     Route: 065
  8. ELTROMBOPAG [Concomitant]
     Active Substance: ELTROMBOPAG
     Dosage: UNK
     Route: 065

REACTIONS (19)
  - Adenocarcinoma pancreas [Fatal]
  - Bacterial sepsis [Unknown]
  - Cholecystitis [Unknown]
  - Cerebral venous thrombosis [Unknown]
  - Basal cell carcinoma [Unknown]
  - Waldenstrom^s macroglobulinaemia [Unknown]
  - Retinal artery occlusion [Unknown]
  - Antiphospholipid syndrome [Unknown]
  - Carotid artery thrombosis [Unknown]
  - Immune thrombocytopenia [Unknown]
  - Pulmonary embolism [Unknown]
  - Embolism [Unknown]
  - Deep vein thrombosis [Unknown]
  - Haemorrhage [Unknown]
  - Herpes zoster [Unknown]
  - Tooth abscess [Unknown]
  - Adverse event [Unknown]
  - Platelet count abnormal [Unknown]
  - Treatment failure [Unknown]
